FAERS Safety Report 12945370 (Version 2)
Quarter: 2016Q4

REPORT INFORMATION
  Report Type: Report from Study
  Country: US (occurrence: US)
  Receive Date: 20161116
  Receipt Date: 20161123
  Transmission Date: 20170207
  Serious: Yes (Other)
  Sender: FDA-Public Use
  Company Number: US-009507513-1611USA007309

PATIENT
  Age: 77 Year
  Sex: Male

DRUGS (1)
  1. PEMBROLIZUMAB. [Suspect]
     Active Substance: PEMBROLIZUMAB
     Indication: NON-SMALL CELL LUNG CANCER
     Dosage: UNK
     Dates: start: 20161104

REACTIONS (13)
  - Feeling abnormal [Unknown]
  - Feeling hot [Unknown]
  - Joint swelling [Unknown]
  - Micturition urgency [Not Recovered/Not Resolved]
  - Functional gastrointestinal disorder [Recovering/Resolving]
  - Pneumonia [Unknown]
  - Tremor [Unknown]
  - Pain [Unknown]
  - Pyrexia [Unknown]
  - Rash [Unknown]
  - Peripheral swelling [Unknown]
  - Flushing [Unknown]
  - Discomfort [Unknown]

NARRATIVE: CASE EVENT DATE: 201611
